FAERS Safety Report 23521651 (Version 1)
Quarter: 2024Q1

REPORT INFORMATION
  Report Type: 
  Country: None (occurrence: None)
  Receive Date: 20240214
  Receipt Date: 20240214
  Transmission Date: 20240410
  Serious: No
  Sender: FDA-Public Use
  Company Number: AU-ROCHE-3508570

PATIENT
  Age: 63 Year
  Weight: 81.5 kg

DRUGS (12)
  1. CEVOSTAMAB [Suspect]
     Active Substance: CEVOSTAMAB
     Dosage: ON 07/FEB/2024 SHE RECEIVED MOST RECENT DOSE OF CEVASTOMAB PRIOR TO AE/SAE AT 11: 18 AM, LAST DOSE A
     Dates: start: 20231004
  2. TOCILIZUMAB [Suspect]
     Active Substance: TOCILIZUMAB
     Dates: start: 20231110
  3. DEXAMETHASONE [Suspect]
     Active Substance: DEXAMETHASONE
     Dosage: ON 07/FEB/2024, SHE RECEIVED MOST RECENT DOSE OF DEXAMETHASONE PRIOR TO SAE AT 10:03 AM
     Dates: start: 20231004
  4. POMALIDOMIDE [Suspect]
     Active Substance: POMALIDOMIDE
     Dosage: ON 06/DEC/2023, SHE RECEIVED MOST RECENT DOSE OF PAMOLIDOMIDE PRIOR TO AE
     Dates: start: 20231109
  5. DEXAMETHASONE [Suspect]
     Active Substance: DEXAMETHASONE
     Dates: start: 20231130
  6. ACETAMINOPHEN [Concomitant]
     Active Substance: ACETAMINOPHEN
     Dates: start: 20230919
  7. TRIMETHOPRIM [Concomitant]
     Active Substance: TRIMETHOPRIM
     Dates: start: 20231004
  8. VALACYCLOVIR HYDROCHLORIDE [Concomitant]
     Active Substance: VALACYCLOVIR HYDROCHLORIDE
     Dates: start: 20231004
  9. FLUCONAZOLE [Concomitant]
     Active Substance: FLUCONAZOLE
     Dates: start: 20231004
  10. BETAMETHASONE DIPROPIONATE [Concomitant]
     Active Substance: BETAMETHASONE DIPROPIONATE
     Dates: start: 20231118
  11. ONDANSETRON [Concomitant]
     Active Substance: ONDANSETRON
  12. VASOPRESSIN [Concomitant]
     Active Substance: VASOPRESSIN

REACTIONS (1)
  - Cytokine release syndrome [None]

NARRATIVE: CASE EVENT DATE: 20240209
